FAERS Safety Report 14236143 (Version 2)
Quarter: 2017Q4

REPORT INFORMATION
  Report Type: Report from Study
  Country: BR (occurrence: BR)
  Receive Date: 20171129
  Receipt Date: 20171130
  Transmission Date: 20180321
  Serious: Yes (Other)
  Sender: FDA-Public Use
  Company Number: PHHY2017BR174923

PATIENT
  Sex: Female
  Weight: 72 kg

DRUGS (3)
  1. TRAVATAN [Suspect]
     Active Substance: TRAVOPROST
     Indication: GLAUCOMA
     Dosage: 1 DRP, QD (FOR EACH EYE)
     Route: 047
  2. SIMBRINZA [Interacting]
     Active Substance: BRIMONIDINE TARTRATE\BRINZOLAMIDE
     Indication: PRODUCT USED FOR UNKNOWN INDICATION
     Dosage: UNK
     Route: 065
  3. DUOTRAVATAN [BAC] [Suspect]
     Active Substance: TIMOLOL MALEATE\TRAVOPROST
     Indication: GLAUCOMA
     Dosage: 1 DRP, QD, ONE DROP IN EACH EYE AT NIGHT
     Route: 047

REACTIONS (2)
  - Intraocular pressure increased [Not Recovered/Not Resolved]
  - Drug ineffective [Recovering/Resolving]
